FAERS Safety Report 15532869 (Version 14)
Quarter: 2019Q2

REPORT INFORMATION
  Report Type: Report from Study
  Country: JP (occurrence: JP)
  Receive Date: 20181019
  Receipt Date: 20190425
  Transmission Date: 20190711
  Serious: Yes (Hospitalization)
  Sender: FDA-Public Use
  Company Number: JP-ROCHE-2200016

PATIENT
  Age: 55 Year
  Sex: Female
  Weight: 41 kg

DRUGS (41)
  1. MAGNESIUM OXIDE. [Concomitant]
     Active Substance: MAGNESIUM OXIDE
     Indication: CONSTIPATION
     Route: 065
     Dates: start: 20180607
  2. POLARAMINE [Concomitant]
     Active Substance: DEXCHLORPHENIRAMINE MALEATE
     Route: 065
     Dates: start: 20181002, end: 20181002
  3. ESOMEPRAZOLE. [Concomitant]
     Active Substance: ESOMEPRAZOLE MAGNESIUM
     Route: 065
     Dates: start: 20181017
  4. CARBOPLATIN. [Suspect]
     Active Substance: CARBOPLATIN
     Indication: OVARIAN CANCER
     Dosage: AT A DOSE TO ACHIEVE A TARGET AREA UNDER THE CURVE (AUC) OF 6 MILLIGRAMS PER MILLILITER*MINUTE (MG/M
     Route: 042
     Dates: start: 20180619
  5. BROTIZOLAM [Concomitant]
     Active Substance: BROTIZOLAM
     Indication: INSOMNIA
     Route: 065
     Dates: start: 20180530
  6. CALONAL [Concomitant]
     Active Substance: ACETAMINOPHEN
     Indication: HEADACHE
     Route: 065
     Dates: start: 20180601
  7. POSTERISAN FORTE [ESCHERICHIA COLI;HYDROCORTISONE] [Concomitant]
     Indication: ANAL INFLAMMATION
     Route: 065
     Dates: start: 20180823
  8. EMEND [Concomitant]
     Active Substance: APREPITANT
     Route: 065
     Dates: start: 20181002, end: 20181004
  9. KETOPROFEN. [Concomitant]
     Active Substance: KETOPROFEN
     Indication: PERIPHERAL SENSORY NEUROPATHY
     Route: 065
     Dates: start: 20181002
  10. EKSALB [Concomitant]
     Indication: ANAL EROSION
     Route: 065
     Dates: start: 20181011
  11. DEXART [Concomitant]
     Active Substance: DEXAMETHASONE SODIUM PHOSPHATE
     Route: 042
     Dates: start: 20180821, end: 20180821
  12. POLARAMINE [Concomitant]
     Active Substance: DEXCHLORPHENIRAMINE MALEATE
     Indication: PROPHYLAXIS
     Route: 065
     Dates: start: 20180731, end: 20180731
  13. DAIKENCHUTO [Concomitant]
     Active Substance: HERBALS
     Route: 065
     Dates: start: 20180530
  14. DEXALTIN [Concomitant]
     Active Substance: DEXAMETHASONE
     Indication: STOMATITIS
     Route: 061
     Dates: start: 20181013, end: 20181117
  15. DEXALTIN [Concomitant]
     Active Substance: DEXAMETHASONE
     Indication: PROPHYLAXIS
  16. FEXOFENADINE [Concomitant]
     Active Substance: FEXOFENADINE\FEXOFENADINE HYDROCHLORIDE
     Indication: RHINITIS ALLERGIC
     Route: 065
     Dates: start: 20180604
  17. SENNOSIDE [SENNOSIDE A+B] [Concomitant]
     Active Substance: SENNOSIDES A AND B
     Indication: CONSTIPATION
     Route: 065
     Dates: start: 20180526
  18. AZUNOL GARGLE LIQUID [Concomitant]
     Indication: MUCOSAL INFECTION
     Route: 065
     Dates: start: 20180629
  19. OLANZAPINE. [Concomitant]
     Active Substance: OLANZAPINE
     Indication: NAUSEA
     Route: 065
     Dates: start: 20180825
  20. EMEND [Concomitant]
     Active Substance: APREPITANT
     Indication: PROPHYLAXIS
     Route: 065
     Dates: start: 20180731, end: 20180802
  21. POLARAMINE [Concomitant]
     Active Substance: DEXCHLORPHENIRAMINE MALEATE
     Route: 065
     Dates: start: 20180821, end: 20180821
  22. VIBRAMYCIN [Concomitant]
     Active Substance: DOXYCYCLINE
     Indication: DERMATITIS ACNEIFORM
     Route: 065
     Dates: start: 20180724, end: 20180731
  23. GRACEVIT [Concomitant]
     Active Substance: SITAFLOXACIN
     Indication: CYSTITIS
     Route: 065
     Dates: start: 20180905, end: 20180907
  24. ATEZOLIZUMAB. [Suspect]
     Active Substance: ATEZOLIZUMAB
     Indication: OVARIAN CANCER
     Dosage: DATE OF MOST RECENT DOSE RECEIVED ON 31/JUL/2018
     Route: 042
     Dates: start: 20180619
  25. RANITIDINE. [Concomitant]
     Active Substance: RANITIDINE
     Route: 065
     Dates: start: 20180821, end: 20180821
  26. GRANISETRON [Concomitant]
     Active Substance: GRANISETRON
     Route: 065
     Dates: start: 20180821, end: 20180821
  27. FELBINAC PAP [Concomitant]
     Indication: MYALGIA
     Route: 065
     Dates: start: 20180622
  28. AZUNOL [SODIUM GUALENATE] [Concomitant]
     Indication: ANAL EROSION
     Route: 065
     Dates: start: 20181011
  29. BESOFTEN [Concomitant]
     Active Substance: PENTOSAN POLYSULFATE SODIUM
     Indication: DRY SKIN
     Route: 065
     Dates: start: 20181017
  30. CELECOX [Concomitant]
     Active Substance: CELECOXIB
     Indication: ABDOMINAL PAIN
     Route: 065
     Dates: start: 20180530
  31. EMEND [Concomitant]
     Active Substance: APREPITANT
     Route: 065
     Dates: start: 20180821, end: 20180823
  32. GRANISETRON [Concomitant]
     Active Substance: GRANISETRON
     Route: 065
     Dates: start: 20181002, end: 20181002
  33. BEVACIZUMAB. [Suspect]
     Active Substance: BEVACIZUMAB
     Indication: OVARIAN CANCER
     Dosage: 31/JUL/2018, MOST RECENT DOSE OF BEVACIZUMAB (714 MG) PRIOR TO HYPERTHYROIDISM ONSET?02/OCT/2018, MO
     Route: 042
     Dates: start: 20180710
  34. RANITIDINE. [Concomitant]
     Active Substance: RANITIDINE
     Indication: PROPHYLAXIS
     Route: 065
     Dates: start: 20180731, end: 20180731
  35. PACLITAXEL. [Suspect]
     Active Substance: PACLITAXEL
     Indication: OVARIAN CANCER
     Dosage: ON DAY 1 OF EACH 21-DAY CYCLE(AS PER PROTOCOL).?MOST RECENT DOSE OF PACLITAXEL (252.9 MG) PRIOR TO H
     Route: 042
     Dates: start: 20180619
  36. RINDERON VG [Concomitant]
     Active Substance: BETAMETHASONE VALERATE\GENTAMICIN SULFATE
     Indication: DERMATITIS ACNEIFORM
     Dosage: DOSE 0.12 (DOSE UNIT REPORTED AS OTHER)
     Route: 061
     Dates: start: 20180810
  37. RANITIDINE. [Concomitant]
     Active Substance: RANITIDINE
     Route: 065
     Dates: start: 20181002, end: 20181002
  38. DEXART [Concomitant]
     Active Substance: DEXAMETHASONE SODIUM PHOSPHATE
     Indication: PROPHYLAXIS
     Route: 042
     Dates: start: 20180731, end: 20180731
  39. DEXART [Concomitant]
     Active Substance: DEXAMETHASONE SODIUM PHOSPHATE
     Route: 042
     Dates: start: 20181002, end: 20181002
  40. GRANISETRON [Concomitant]
     Active Substance: GRANISETRON
     Indication: PROPHYLAXIS
     Route: 065
     Dates: start: 20180731, end: 20180731
  41. LANSOPRAZOLE. [Concomitant]
     Active Substance: LANSOPRAZOLE
     Route: 065
     Dates: start: 20180525, end: 20180731

REACTIONS (4)
  - Febrile neutropenia [Recovered/Resolved]
  - Hypothyroidism [Not Recovered/Not Resolved]
  - Hyperthyroidism [Recovered/Resolved]
  - Colitis [Recovering/Resolving]

NARRATIVE: CASE EVENT DATE: 20180820
